FAERS Safety Report 13028364 (Version 2)
Quarter: 2016Q4

REPORT INFORMATION
  Report Type: Spontaneous
  Country: NL (occurrence: NL)
  Receive Date: 20161214
  Receipt Date: 20161222
  Transmission Date: 20170207
  Serious: Yes (Other)
  Sender: FDA-Public Use
  Company Number: NL-TEVA-719241ACC

PATIENT
  Age: 48 Year
  Sex: Female
  Weight: 85 kg

DRUGS (2)
  1. LITHIUM CARBONATE PCH TABLET 400MG [Suspect]
     Active Substance: LITHIUM CARBONATE
     Indication: BIPOLAR DISORDER
     Dosage: 800 MILLIGRAM DAILY; 1 TIME PER DAY 2 PIECE(S), EXTRA INFO: 800MG, BLOOD LEVEL 0.6-0.8
     Route: 048
     Dates: start: 20160201
  2. SEROQUEL XR [Interacting]
     Active Substance: QUETIAPINE FUMARATE
     Indication: BIPOLAR DISORDER
     Dosage: 2 DOSAGE FORMS DAILY; EXTRA INFO: 1 TIME 400 MG, 12 HOURS LATER 200 MG
     Route: 048
     Dates: start: 20160701, end: 20160905

REACTIONS (2)
  - Drug interaction [Recovered/Resolved]
  - Atrial fibrillation [Recovered/Resolved]

NARRATIVE: CASE EVENT DATE: 20160901
